FAERS Safety Report 14476236 (Version 2)
Quarter: 2018Q3

REPORT INFORMATION
  Report Type: Spontaneous
  Country: US (occurrence: US)
  Receive Date: 20180201
  Receipt Date: 20180723
  Transmission Date: 20181010
  Serious: No
  Sender: FDA-Public Use
  Company Number: US-SA-2017SA249337

PATIENT
  Age: 74 Year
  Sex: Male
  Weight: 118.84 kg

DRUGS (2)
  1. ALIROCUMAB PREFILLED PEN [Suspect]
     Active Substance: ALIROCUMAB
     Indication: LOW DENSITY LIPOPROTEIN INCREASED
     Dates: start: 20171006
  2. PRALUENT [Suspect]
     Active Substance: ALIROCUMAB
     Indication: LOW DENSITY LIPOPROTEIN INCREASED
     Dosage: 75 MG,QOW
     Route: 058
     Dates: start: 20171006

REACTIONS (4)
  - Product use issue [Unknown]
  - Injection site injury [Unknown]
  - Underdose [Unknown]
  - Device issue [Unknown]

NARRATIVE: CASE EVENT DATE: 20171206
